FAERS Safety Report 15074936 (Version 1)
Quarter: 2018Q2

REPORT INFORMATION
  Report Type: Spontaneous
  Country: US (occurrence: US)
  Receive Date: 20180627
  Receipt Date: 20180627
  Transmission Date: 20180711
  Serious: Yes (Other)
  Sender: FDA-Public Use
  Company Number: US-SAOL THERAPEUTICS-2017SAO01658

PATIENT
  Sex: Male

DRUGS (2)
  1. BACLOFEN. [Suspect]
     Active Substance: BACLOFEN
     Dosage: 200 ?G, \DAY
     Route: 037
     Dates: start: 20171020
  2. BACLOFEN. [Suspect]
     Active Substance: BACLOFEN
     Dosage: 877 ?G, \DAY
     Route: 037
     Dates: end: 20171020

REACTIONS (1)
  - Cerebrospinal fluid leakage [Recovered/Resolved]
